FAERS Safety Report 9866002 (Version 1)
Quarter: 2014Q1

REPORT INFORMATION
  Report Type: Spontaneous
  Country: US (occurrence: US)
  Receive Date: 20140203
  Receipt Date: 20140203
  Transmission Date: 20141002
  Serious: No
  Sender: FDA-Public Use
  Company Number: US-ALLERGAN-1313669US

PATIENT
  Age: 58 Year
  Sex: Female

DRUGS (3)
  1. REFRESH OPTIVE SENSITIVE [Suspect]
     Indication: DRY EYE
     Dosage: 2 GTT, UNK
     Route: 047
  2. RESTASIS [Suspect]
     Indication: DRY EYE
     Dosage: 2 UNK, BID
     Route: 047
  3. TRAVATAN D [Concomitant]
     Indication: GLAUCOMA
     Dosage: 2 GTT, QHS
     Route: 047

REACTIONS (2)
  - Foreign body sensation in eyes [Recovered/Resolved]
  - Ocular hyperaemia [Recovered/Resolved]
